FAERS Safety Report 6818576-3 (Version None)
Quarter: 2010Q3

REPORT INFORMATION
  Report Type: 
  Country: None (occurrence: None)
  Receive Date: 20100706
  Receipt Date: 20090131
  Transmission Date: 20110219
  Serious: No
  Sender: FDA-Public Use
  Company Number: US-PFIZER INC-2008157084

PATIENT
  Sex: Female
  Weight: 49.887 kg

DRUGS (1)
  1. AZITHROMYCIN [Suspect]
     Indication: SINUSITIS
     Dosage: 250 MG, UNK
     Dates: start: 20081215

REACTIONS (3)
  - ABDOMINAL DISCOMFORT [None]
  - COGNITIVE DISORDER [None]
  - DIARRHOEA [None]
